FAERS Safety Report 25799247 (Version 1)
Quarter: 2025Q3

REPORT INFORMATION
  Report Type: Spontaneous
  Country: US (occurrence: US)
  Receive Date: 20250913
  Receipt Date: 20250913
  Transmission Date: 20251020
  Serious: No
  Sender: ALEXION PHARMACEUTICALS
  Company Number: US-AstraZeneca-CH-00947993AP

PATIENT
  Age: 48 Year
  Sex: Female

DRUGS (2)
  1. FASENRA [Suspect]
     Active Substance: BENRALIZUMAB
     Route: 065
  2. FASENRA [Suspect]
     Active Substance: BENRALIZUMAB

REACTIONS (4)
  - Injection site bruising [Unknown]
  - Incorrect dose administered by device [Unknown]
  - Wrong technique in device usage process [Unknown]
  - Device delivery system issue [Unknown]

NARRATIVE: CASE EVENT DATE: 20250909
